FAERS Safety Report 23766011 (Version 5)
Quarter: 2025Q4

REPORT INFORMATION
  Report Type: Report from Study
  Country: CA (occurrence: CA)
  Receive Date: 20240421
  Receipt Date: 20251209
  Transmission Date: 20260117
  Serious: Yes (Hospitalization, Other)
  Sender: BIOGEN
  Company Number: CA-BIOGEN-2024BI01260536

PATIENT
  Age: 36 Year
  Sex: Female

DRUGS (3)
  1. TECFIDERA [Suspect]
     Active Substance: DIMETHYL FUMARATE
     Indication: Relapsing-remitting multiple sclerosis
     Dosage: DOSAGE TEXT:MAINTENANCE DOSE
     Dates: start: 20121112, end: 202307
  2. TECFIDERA [Suspect]
     Active Substance: DIMETHYL FUMARATE
  3. TECFIDERA [Suspect]
     Active Substance: DIMETHYL FUMARATE
     Dosage: DOSAGE TEXT:MAINTENANCE DOSE
     Dates: start: 20141112

REACTIONS (3)
  - Ovarian cancer [Recovered/Resolved]
  - Endometrial cancer [Not Recovered/Not Resolved]
  - Ovarian cancer recurrent [Not Recovered/Not Resolved]

NARRATIVE: CASE EVENT DATE: 20230601
